FAERS Safety Report 25162003 (Version 1)
Quarter: 2025Q2

REPORT INFORMATION
  Report Type: Spontaneous
  Country: US (occurrence: None)
  Receive Date: 20250404
  Receipt Date: 20250404
  Transmission Date: 20250717
  Serious: Yes (Disabling)
  Sender: FDA-CTU
  Company Number: None

PATIENT
  Age: 50 Year
  Sex: Female
  Weight: 54 kg

DRUGS (1)
  1. CARBAMAZEPINE [Suspect]
     Active Substance: CARBAMAZEPINE
     Indication: Affective disorder
     Dates: start: 20100110, end: 20100510

REACTIONS (4)
  - Oral lichen planus [None]
  - Vaginal disorder [None]
  - Lichen planus [None]
  - Autoimmune disorder [None]

NARRATIVE: CASE EVENT DATE: 20100510
